FAERS Safety Report 4673514-7 (Version None)
Quarter: 2005Q2

REPORT INFORMATION
  Report Type: 
  Country: None (occurrence: None)
  Receive Date: 20050523
  Receipt Date: 20050511
  Transmission Date: 20051028
  Serious: Yes (Other)
  Sender: FDA-Public Use
  Company Number: 2005073296

PATIENT
  Sex: Male

DRUGS (4)
  1. VIRACEPT [Suspect]
     Indication: HIV INFECTION
  2. TRUVADA (EMTRICITABINE, TENOFOVIR DISOPROXIL FUMARATE) [Concomitant]
  3. BACTRIM [Concomitant]
  4. ZITHROMAX [Concomitant]

REACTIONS (1)
  - HYPOKALAEMIA [None]
